FAERS Safety Report 9148884 (Version 1)
Quarter: 2013Q1

REPORT INFORMATION
  Report Type: Spontaneous
  Country: US (occurrence: US)
  Receive Date: 20130308
  Receipt Date: 20130308
  Transmission Date: 20140127
  Serious: No
  Sender: FDA-Public Use
  Company Number: US-ENDO PHARMACEUTICALS INC.-OPCR20121435

PATIENT
  Age: 48 None
  Sex: Female

DRUGS (4)
  1. OPANA ER [Suspect]
     Indication: PAIN
     Route: 048
     Dates: start: 20120615
  2. AMBIEN [Concomitant]
     Indication: INSOMNIA
  3. OPANA ER [Concomitant]
     Indication: PAIN
     Route: 048
     Dates: start: 2011
  4. NORCO [Concomitant]
     Indication: PAIN
     Route: 048

REACTIONS (5)
  - Muscle spasms [Not Recovered/Not Resolved]
  - Feeling abnormal [Not Recovered/Not Resolved]
  - Dyskinesia [Not Recovered/Not Resolved]
  - Sleep disorder [Not Recovered/Not Resolved]
  - Drug ineffective [Not Recovered/Not Resolved]
